FAERS Safety Report 6137259-9 (Version None)
Quarter: 2009Q1

REPORT INFORMATION
  Report Type: 
  Country: None (occurrence: None)
  Receive Date: 20090326
  Receipt Date: 20090326
  Transmission Date: 20090719
  Serious: Yes (Death)
  Sender: FDA-Public Use
  Company Number: None

PATIENT
  Age: 47 Year
  Sex: Male
  Weight: 77.1115 kg

DRUGS (1)
  1. NEURONTIN [Suspect]
     Indication: BACK PAIN
     Dosage: 300 MG PO
     Route: 048
     Dates: start: 20090116, end: 20090117

REACTIONS (4)
  - BLOOD ALCOHOL INCREASED [None]
  - EPISTAXIS [None]
  - PALPITATIONS [None]
  - SUDDEN DEATH [None]
